FAERS Safety Report 19382052 (Version 4)
Quarter: 2021Q3

REPORT INFORMATION
  Report Type: Spontaneous
  Country: US (occurrence: US)
  Receive Date: 20210607
  Receipt Date: 20210908
  Transmission Date: 20211014
  Serious: No
  Sender: FDA-Public Use
  Company Number: US-ORGANON-O2106USA000349

PATIENT
  Age: 45 Year
  Sex: Male

DRUGS (3)
  1. PREGNYL [Suspect]
     Active Substance: CHORIOGONADOTROPIN ALFA
     Dosage: 4TH BOTTLE, 500 IU 3 TIMES PER WEEK (REPORTED AS 10000U 10ML)
     Dates: start: 20210521
  2. PREGNYL [Suspect]
     Active Substance: CHORIOGONADOTROPIN ALFA
     Dosage: 1ST, 2ND, 3RD BOTTLE
  3. STERILE WATER [Suspect]
     Active Substance: WATER
     Dosage: MERCK DILUENT

REACTIONS (2)
  - Therapeutic response decreased [Not Recovered/Not Resolved]
  - Intentional product misuse [Unknown]

NARRATIVE: CASE EVENT DATE: 20210521
